FAERS Safety Report 4276682-4 (Version None)
Quarter: 2004Q1

REPORT INFORMATION
  Report Type: 
  Country: None (occurrence: None)
  Receive Date: 20040120
  Receipt Date: 20040105
  Transmission Date: 20041129
  Serious: Yes (Hospitalization, Other)
  Sender: FDA-Public Use
  Company Number: HQ9554117DEC2001

PATIENT
  Age: 56 Year
  Sex: Female

DRUGS (7)
  1. DIMETAPP [Suspect]
     Dosage: AS NEEDED, ORAL
     Route: 048
     Dates: start: 19950101, end: 19980101
  2. ENTEX LA (GUAIFENESIN/PHENYLPROPANOLAMINE HYDROCHLORIDE) [Concomitant]
  3. DIABETA [Concomitant]
  4. MICRONASE [Concomitant]
  5. VENTOLIN [Concomitant]
  6. BUSPAR [Concomitant]
  7. THEOPHYLLINE [Concomitant]

REACTIONS (10)
  - ALPHA HAEMOLYTIC STREPTOCOCCAL INFECTION [None]
  - BLEPHAROSPASM [None]
  - BREATH SOUNDS DECREASED [None]
  - CARCINOMA [None]
  - CEREBROVASCULAR ACCIDENT [None]
  - CIRCULATORY COLLAPSE [None]
  - COMA [None]
  - CONVULSION [None]
  - ENDOCARDITIS BACTERIAL [None]
  - MUSCLE SPASMS [None]
